FAERS Safety Report 19266086 (Version 1)
Quarter: 2021Q2

REPORT INFORMATION
  Report Type: Report from Study
  Country: None (occurrence: US)
  Receive Date: 20210518
  Receipt Date: 20210518
  Transmission Date: 20210717
  Serious: Yes (Hospitalization, Other)
  Sender: FDA-Public Use
  Company Number: US-ABBVIE-21K-163-3894119-00

PATIENT
  Age: 74 Year
  Sex: Male
  Weight: 69.92 kg

DRUGS (5)
  1. CEPHALEXIN. [Concomitant]
     Active Substance: CEPHALEXIN
     Indication: INFECTION PROPHYLAXIS
  2. OXYCODONE [Concomitant]
     Active Substance: OXYCODONE
     Indication: PROCEDURAL PAIN
  3. HUMIRA [Suspect]
     Active Substance: ADALIMUMAB
     Indication: CROHN^S DISEASE
     Dosage: CITRATE FREE
     Route: 058
     Dates: start: 2020
  4. COVID?19 VACCINE NOS. [Concomitant]
     Active Substance: COVID-19 VACCINE NOS
     Indication: COVID-19 IMMUNISATION
     Dosage: PFIZER
     Route: 030
     Dates: start: 202102, end: 202102
  5. COVID?19 VACCINE NOS. [Concomitant]
     Active Substance: COVID-19 VACCINE NOS
     Dosage: PFIZER
     Route: 030
     Dates: start: 20210310, end: 20210310

REACTIONS (5)
  - Spinal fusion acquired [Recovering/Resolving]
  - Dysuria [Recovering/Resolving]
  - Nerve compression [Recovering/Resolving]
  - Nephropathy [Unknown]
  - Procedural pain [Unknown]

NARRATIVE: CASE EVENT DATE: 2020
